FAERS Safety Report 12738819 (Version 2)
Quarter: 2016Q3

REPORT INFORMATION
  Report Type: Report from Study
  Country: US (occurrence: US)
  Receive Date: 20160912
  Receipt Date: 20160923
  Transmission Date: 20161109
  Serious: Yes (Hospitalization, Other)
  Sender: FDA-Public Use
  Company Number: US-GILEAD-2016-0232866

PATIENT
  Age: 44 Year
  Sex: Female
  Weight: 77.98 kg

DRUGS (8)
  1. SYNTHROID [Concomitant]
     Active Substance: LEVOTHYROXINE SODIUM
  2. ASPIRIN 81 [Concomitant]
     Active Substance: ASPIRIN
  3. TORSEMIDE. [Concomitant]
     Active Substance: TORSEMIDE
  4. SPIRONOLACTONE. [Concomitant]
     Active Substance: SPIRONOLACTONE
  5. PLAQUENIL                          /00072602/ [Concomitant]
     Active Substance: HYDROXYCHLOROQUINE DIPHOSPHATE
  6. SILDENAFIL. [Concomitant]
     Active Substance: SILDENAFIL
  7. AMBRISENTAN [Suspect]
     Active Substance: AMBRISENTAN
     Indication: PULMONARY ARTERIAL HYPERTENSION
     Dosage: 10 MG, QD
     Route: 048
     Dates: start: 20150421
  8. CELEXA [Concomitant]
     Active Substance: CITALOPRAM HYDROBROMIDE

REACTIONS (2)
  - Unevaluable event [Unknown]
  - Syncope [Unknown]
